FAERS Safety Report 18078350 (Version 1)
Quarter: 2020Q3

REPORT INFORMATION
  Report Type: Spontaneous
  Country: DE (occurrence: DE)
  Receive Date: 20200728
  Receipt Date: 20200728
  Transmission Date: 20201103
  Serious: No
  Sender: FDA-Public Use
  Company Number: DE-ALKEM LABORATORIES LIMITED-DE-ALKEM-2020-01227

PATIENT
  Age: 67 Year
  Sex: Female

DRUGS (5)
  1. AMBROXOL [Concomitant]
     Active Substance: AMBROXOL
     Indication: INCREASED BRONCHIAL SECRETION
     Dosage: 75 MILLIGRAM, OD
     Route: 048
     Dates: start: 20200127
  2. FOSTER 100/6 MIKROGRAMM [Concomitant]
     Indication: PRODUCT USED FOR UNKNOWN INDICATION
     Dosage: UNKNOWN
     Route: 055
     Dates: start: 20200127
  3. HYDROCORTISONE. [Concomitant]
     Active Substance: HYDROCORTISONE
     Indication: PRODUCT USED FOR UNKNOWN INDICATION
     Dosage: 20 MILLIGRAM, OD
     Route: 048
  4. CEFUROXIME AXETIL. [Suspect]
     Active Substance: CEFUROXIME AXETIL
     Indication: BACTERIAL INFECTION
     Dosage: 500 MILLIGRAM, 12 PER HOUR
     Route: 048
     Dates: start: 20200127, end: 20200128
  5. SIDROGA HUSTEN? UND BRONCHIALTEE [Concomitant]
     Indication: PRODUCT USED FOR UNKNOWN INDICATION
     Dosage: UNKNOWN
     Route: 065
     Dates: start: 20200127

REACTIONS (2)
  - Rash [Recovered/Resolved]
  - Hypersensitivity [Recovered/Resolved]

NARRATIVE: CASE EVENT DATE: 20200127
